FAERS Safety Report 25024521 (Version 1)
Quarter: 2025Q1

REPORT INFORMATION
  Report Type: Spontaneous
  Country: AR (occurrence: AR)
  Receive Date: 20250228
  Receipt Date: 20250228
  Transmission Date: 20250409
  Serious: Yes (Other)
  Sender: PFIZER
  Company Number: AR-PFIZER INC-202500045508

PATIENT
  Age: 69 Year
  Sex: Male

DRUGS (1)
  1. VYNDAQEL [Suspect]
     Active Substance: TAFAMIDIS MEGLUMINE
     Indication: Cardiac amyloidosis
     Dosage: 20 MG, 1X/DAY
     Dates: start: 20230627

REACTIONS (4)
  - Prostate cancer [Unknown]
  - Fatigue [Unknown]
  - Dysuria [Unknown]
  - Pain in extremity [Unknown]
